FAERS Safety Report 8858395 (Version 2)
Quarter: 2013Q1

REPORT INFORMATION
  Report Type: Spontaneous
  Country: US (occurrence: US)
  Receive Date: 20121024
  Receipt Date: 20130125
  Transmission Date: 20140127
  Serious: Yes (Hospitalization)
  Sender: FDA-Public Use
  Company Number: US-009507513-1210USA009750

PATIENT
  Age: 56 None
  Sex: Male
  Weight: 78.91 kg

DRUGS (7)
  1. REBETOL [Suspect]
     Indication: CHRONIC HEPATITIS C
     Dosage: 400 MG, BID
     Route: 048
     Dates: start: 20121001, end: 20121010
  2. PEGINTRON [Suspect]
     Indication: CHRONIC HEPATITIS C
     Dosage: 80 MICROGRAM/0.5 ML
     Route: 058
     Dates: start: 20121001
  3. PEGINTRON [Suspect]
     Dosage: 80 MICROGRAM/0.5 ML
     Route: 058
     Dates: start: 20121009, end: 20121010
  4. AMPICILLIN [Concomitant]
     Dosage: 3 DF, TID
     Route: 048
     Dates: start: 20121010, end: 20121018
  5. LORATADINE [Concomitant]
     Dosage: 1 DF, QD
     Route: 048
  6. CENTRUM (PERFOMANCE (ASIAN GINSENG (+) GINKGO (+) MINERALS (UNSPECIFIE [Concomitant]
     Dosage: 1 DF, QD
     Route: 048
  7. TUMS [Concomitant]
     Dosage: 1 DF, PRN (500)
     Route: 048

REACTIONS (2)
  - Cellulitis [Recovered/Resolved]
  - Hypersensitivity [Recovered/Resolved]
